FAERS Safety Report 9364136 (Version 1)
Quarter: 2013Q2

REPORT INFORMATION
  Report Type: Spontaneous
  Country: BE (occurrence: BE)
  Receive Date: 20130624
  Receipt Date: 20130624
  Transmission Date: 20140414
  Serious: Yes (Other)
  Sender: FDA-Public Use
  Company Number: BE-ELI_LILLY_AND_COMPANY-BE201305009509

PATIENT
  Age: 60 Year
  Sex: Male

DRUGS (2)
  1. ALIMTA [Suspect]
     Indication: NON-SMALL CELL LUNG CANCER
     Route: 042
  2. ALIMTA [Suspect]
     Dosage: DOSE REDUCED TO 75%
     Route: 042

REACTIONS (3)
  - Liver function test abnormal [Unknown]
  - Rash [Recovered/Resolved]
  - Conjunctivitis [Unknown]
